FAERS Safety Report 7415100-1 (Version None)
Quarter: 2011Q2

REPORT INFORMATION
  Report Type: 
  Country: None (occurrence: None)
  Receive Date: 20110414
  Receipt Date: 20110404
  Transmission Date: 20111010
  Serious: Yes (Other)
  Sender: FDA-Public Use
  Company Number: US-ROCHE-756676

PATIENT
  Sex: Female

DRUGS (2)
  1. COPEGUS [Suspect]
     Indication: HEPATITIS C
     Dosage: DIVIDED DOSES
     Route: 065
     Dates: start: 20110116
  2. PEGASYS [Suspect]
     Indication: HEPATITIS C
     Dosage: FORM:PRE FILLED SYRINGE
     Route: 058
     Dates: start: 20110116

REACTIONS (5)
  - HAEMOPTYSIS [None]
  - INJECTION SITE RASH [None]
  - MENORRHAGIA [None]
  - ORAL DISORDER [None]
  - DRUG INEFFECTIVE [None]
